FAERS Safety Report 6038110-8 (Version None)
Quarter: 2009Q1

REPORT INFORMATION
  Report Type: 
  Country: None (occurrence: None)
  Receive Date: 20090115
  Receipt Date: 20090109
  Transmission Date: 20090719
  Serious: Yes (Death, Hospitalization)
  Sender: FDA-Public Use
  Company Number: GB-BAYER-200813570BNE

PATIENT
  Age: 95 Year
  Sex: Male

DRUGS (3)
  1. ASPIRIN [Suspect]
     Indication: DRUG USE FOR UNKNOWN INDICATION
  2. ENOXAPARIN SODIUM [Interacting]
     Indication: ACUTE CORONARY SYNDROME
  3. PLAVIX [Interacting]
     Indication: DRUG USE FOR UNKNOWN INDICATION
     Route: 048

REACTIONS (5)
  - ANAEMIA [None]
  - HAEMATEMESIS [None]
  - HAEMOPTYSIS [None]
  - OVERDOSE [None]
  - PULMONARY HAEMORRHAGE [None]
